FAERS Safety Report 16193886 (Version 1)
Quarter: 2019Q2

REPORT INFORMATION
  Report Type: Spontaneous
  Country: US (occurrence: US)
  Receive Date: 20190413
  Receipt Date: 20190413
  Transmission Date: 20190711
  Serious: No
  Sender: FDA-Public Use
  Company Number: US-009507513-1904USA001750

PATIENT
  Sex: Female

DRUGS (5)
  1. ATENOLOL. [Concomitant]
     Active Substance: ATENOLOL
  2. CILOSTAZOL. [Concomitant]
     Active Substance: CILOSTAZOL
  3. INTRON A [Suspect]
     Active Substance: INTERFERON ALFA-2B
     Indication: T-CELL LYMPHOMA
     Dosage: 2.5 MILLION UNITS, DAILY
     Route: 058
     Dates: start: 20190320
  4. LOVASTATIN. [Concomitant]
     Active Substance: LOVASTATIN
  5. AMLODIPINE BESYLATE (+) BENAZEPRIL HYDROCHLORIDE [Concomitant]
     Active Substance: AMLODIPINE BESYLATE\BENAZEPRIL HYDROCHLORIDE

REACTIONS (2)
  - Product dose omission [Unknown]
  - Adverse event [Unknown]
